FAERS Safety Report 6371058-8 (Version None)
Quarter: 2009Q3

REPORT INFORMATION
  Report Type: 
  Country: None (occurrence: None)
  Receive Date: 20090923
  Receipt Date: 20090911
  Transmission Date: 20100115
  Serious: Yes (Hospitalization)
  Sender: FDA-Public Use
  Company Number: CA-PFIZER INC-2009267666

PATIENT
  Age: 65 Year

DRUGS (5)
  1. CHAMPIX [Suspect]
     Dosage: UNK
     Dates: start: 20080101, end: 20090521
  2. CHAMPIX [Suspect]
     Dosage: UNK
     Dates: start: 20080101, end: 20080101
  3. LIPIDIL [Concomitant]
     Dosage: 200 MG, 1X/DAY
  4. ASPIRIN [Concomitant]
     Dosage: 80 MG, 1X/DAY
  5. METFORMIN [Concomitant]
     Dosage: 500 MG, 1X/DAY

REACTIONS (2)
  - HYPOMANIA [None]
  - MOOD ALTERED [None]
